FAERS Safety Report 12483783 (Version 1)
Quarter: 2016Q2

REPORT INFORMATION
  Report Type: Spontaneous
  Country: US (occurrence: None)
  Receive Date: 20160620
  Receipt Date: 20160620
  Transmission Date: 20160815
  Serious: Yes (Hospitalization)
  Sender: FDA-Public Use
  Company Number: None

PATIENT
  Age: 47 Year
  Sex: Female

DRUGS (8)
  1. ASPIRIN. [Concomitant]
     Active Substance: ASPIRIN
  2. PANTOPRAZOLE [Concomitant]
     Active Substance: PANTOPRAZOLE SODIUM
  3. REVLIMID [Concomitant]
     Active Substance: LENALIDOMIDE
  4. DEXAMETHASONE 4MG TAB ROXANE [Suspect]
     Active Substance: DEXAMETHASONE
     Indication: PLASMA CELL MYELOMA
     Dosage: 20 MG QW 1ST 3 WKS OF 4 ORAL
     Route: 048
     Dates: start: 201605, end: 201606
  5. ACYCLOVIR. [Concomitant]
     Active Substance: ACYCLOVIR
  6. NINLARO [Suspect]
     Active Substance: IXAZOMIB
     Indication: PLASMA CELL MYELOMA
     Dosage: 4 MG QW 1ST 3 WKS OF 4 ORAL
     Route: 048
     Dates: start: 201605, end: 201606
  7. CYMBALTA [Concomitant]
     Active Substance: DULOXETINE HYDROCHLORIDE
  8. XANAX [Concomitant]
     Active Substance: ALPRAZOLAM

REACTIONS (2)
  - Therapy cessation [None]
  - Pneumonia [None]

NARRATIVE: CASE EVENT DATE: 201606
